FAERS Safety Report 22205564 (Version 2)
Quarter: 2023Q2

REPORT INFORMATION
  Report Type: Spontaneous
  Country: None (occurrence: SE)
  Receive Date: 20230413
  Receipt Date: 20230512
  Transmission Date: 20230721
  Serious: Yes (Other)
  Sender: FDA-Public Use
  Company Number: SE-Therakind Limited-2140254

PATIENT
  Sex: Female

DRUGS (14)
  1. METHOTREXATE [Suspect]
     Active Substance: METHOTREXATE
     Indication: Diffuse large B-cell lymphoma
     Route: 065
     Dates: start: 20211001, end: 20220308
  2. OXALIPLATIN [Suspect]
     Active Substance: OXALIPLATIN
  3. CYCLOPHOSPHAMIDE [Suspect]
     Active Substance: CYCLOPHOSPHAMIDE
  4. DEXAMETHASONE [Suspect]
     Active Substance: DEXAMETHASONE
  5. POLATUZUMAB VEDOTIN [Suspect]
     Active Substance: POLATUZUMAB VEDOTIN
  6. GEMCITABINE [Suspect]
     Active Substance: GEMCITABINE
  7. OBINUTUZUMAB [Suspect]
     Active Substance: OBINUTUZUMAB
  8. CISPLATIN [Suspect]
     Active Substance: CISPLATIN
  9. EPIRUBICIN [Suspect]
     Active Substance: EPIRUBICIN
  10. RITUXIMAB [Suspect]
     Active Substance: RITUXIMAB
  11. PREDNISONE [Suspect]
     Active Substance: PREDNISONE
  12. ONCOVIN [Suspect]
     Active Substance: VINCRISTINE SULFATE
  13. ETOPOSIDE [Suspect]
     Active Substance: ETOPOSIDE
  14. CYTARABINE [Suspect]
     Active Substance: CYTARABINE

REACTIONS (4)
  - Acute kidney injury [Recovered/Resolved]
  - Disease progression [Unknown]
  - Toxicity to various agents [Unknown]
  - Off label use [Unknown]
